FAERS Safety Report 8131169-3 (Version None)
Quarter: 2012Q1

REPORT INFORMATION
  Report Type: 
  Country: None (occurrence: None)
  Receive Date: 20120209
  Receipt Date: 20120209
  Transmission Date: 20120608
  Serious: Yes (Other)
  Sender: FDA-Public Use
  Company Number: None

PATIENT
  Sex: Female
  Weight: 36.3 kg

DRUGS (2)
  1. TRILEPTAL [Suspect]
     Indication: CONVULSION
     Dosage: 12.5 ML BID PO
     Route: 048
     Dates: start: 20090707
  2. TRILEPTAL [Suspect]
     Indication: CEREBRAL PALSY
     Dosage: 12.5 ML BID PO
     Route: 048
     Dates: start: 20090707

REACTIONS (2)
  - CONVULSION [None]
  - PRODUCT SUBSTITUTION ISSUE [None]
